FAERS Safety Report 7747763-5 (Version None)
Quarter: 2011Q3

REPORT INFORMATION
  Report Type: 
  Country: None (occurrence: None)
  Receive Date: 20110913
  Receipt Date: 20110909
  Transmission Date: 20111222
  Serious: Yes (Hospitalization)
  Sender: FDA-Public Use
  Company Number: US-GILEAD-2011-0043157

PATIENT
  Sex: Female

DRUGS (4)
  1. LETAIRIS [Suspect]
     Indication: PULMONARY HYPERTENSION
     Route: 048
     Dates: start: 20110804
  2. LETAIRIS [Suspect]
     Indication: PULMONARY FIBROSIS
  3. ADCIRCA [Concomitant]
  4. LETAIRIS [Suspect]
     Indication: RHEUMATOID ARTHRITIS

REACTIONS (2)
  - CONDUCTIVE DEAFNESS [None]
  - PULMONARY ARTERIAL HYPERTENSION [None]
